FAERS Safety Report 13797153 (Version 16)
Quarter: 2018Q3

REPORT INFORMATION
  Report Type: Report from Study
  Country: JP (occurrence: JP)
  Receive Date: 20170727
  Receipt Date: 20180718
  Transmission Date: 20181010
  Serious: Yes (Hospitalization, Disabling, Other)
  Sender: FDA-Public Use
  Company Number: JP-AMGEN-JPNCT2016183970

PATIENT
  Age: 51 Year
  Sex: Female
  Weight: 29 kg

DRUGS (66)
  1. DARBEPOETIN ALFA [Suspect]
     Active Substance: DARBEPOETIN ALFA
     Dosage: 60 MUG, Q4WK
     Route: 058
     Dates: start: 20160930, end: 20161028
  2. AMITIZA [Suspect]
     Active Substance: LUBIPROSTONE
     Indication: CONSTIPATION
     Dosage: 24 MUG, BID
     Route: 048
     Dates: start: 20160415, end: 20161218
  3. SODIUM PICOSULFATE [Suspect]
     Active Substance: SODIUM PICOSULFATE
     Indication: CONSTIPATION
     Dosage: 10 GTT, AS NECESSARY
     Route: 048
     Dates: start: 20160415, end: 20161218
  4. SODIUM BICARBONATE. [Concomitant]
     Active Substance: SODIUM BICARBONATE
     Indication: MINERAL SUPPLEMENTATION
     Dosage: 1 G, BID
     Route: 048
     Dates: start: 20160415, end: 20161218
  5. SODIUM BICARBONATE. [Concomitant]
     Active Substance: SODIUM BICARBONATE
     Dosage: 1 G, BID
     Route: 048
     Dates: start: 20170829
  6. SLOW?K [Concomitant]
     Active Substance: POTASSIUM CHLORIDE
     Dosage: 600 MG, BID
     Route: 048
     Dates: start: 20170113
  7. PICOSULFATE NA [Concomitant]
     Active Substance: SODIUM PICOSULFATE
     Dosage: 10 MG, PRN
  8. ASPARA POTASSIUM [Concomitant]
     Active Substance: POTASSIUM ASPARTATE
     Indication: HYPOKALAEMIA
     Dosage: 300 MG, TID
     Route: 048
     Dates: start: 20170723
  9. ASPARA POTASSIUM [Concomitant]
     Active Substance: POTASSIUM ASPARTATE
     Dosage: 600 MG, TID
     Route: 048
     Dates: start: 20170905
  10. RIONA [Concomitant]
     Active Substance: FERRIC CITRATE ANHYDROUS
     Indication: HYPERPHOSPHATAEMIA
     Dosage: 250 MG, BID
     Route: 048
     Dates: start: 20180112
  11. DARBEPOETIN ALFA [Suspect]
     Active Substance: DARBEPOETIN ALFA
     Dosage: 60 MUG, UNK
     Route: 058
     Dates: start: 20161202
  12. DARBEPOETIN ALFA [Suspect]
     Active Substance: DARBEPOETIN ALFA
     Dosage: 60 MUG, UNK
     Route: 058
     Dates: start: 20170428
  13. DARBEPOETIN ALFA [Suspect]
     Active Substance: DARBEPOETIN ALFA
     Dosage: 30 MUG, QWK
     Route: 042
     Dates: start: 201711
  14. SENNOSIDE [Suspect]
     Active Substance: SENNOSIDES
     Dosage: 24 MG, QD
     Route: 048
     Dates: start: 20161222
  15. FUROSEMIDE. [Suspect]
     Active Substance: FUROSEMIDE
     Indication: POLYURIA
     Dosage: 20 MG, BID
     Route: 048
     Dates: start: 20170606
  16. DARBEPOETIN ALFA [Suspect]
     Active Substance: DARBEPOETIN ALFA
     Indication: CHRONIC KIDNEY DISEASE
     Dosage: 30 MUG, Q4WK
     Route: 058
     Dates: start: 20160805, end: 20160902
  17. DARBEPOETIN ALFA [Suspect]
     Active Substance: DARBEPOETIN ALFA
     Dosage: 30 MUG, UNK
     Route: 042
     Dates: start: 20171030, end: 20171030
  18. AMITIZA [Suspect]
     Active Substance: LUBIPROSTONE
     Dosage: 24 MUG, BID
     Route: 048
     Dates: start: 20161222
  19. AMITIZA [Suspect]
     Active Substance: LUBIPROSTONE
     Dosage: 12 MUG, BID
     Route: 048
     Dates: start: 20170818, end: 20171027
  20. SODIUM PICOSULFATE [Suspect]
     Active Substance: SODIUM PICOSULFATE
     Dosage: 10 GTT, AS NECESSARY
     Route: 048
     Dates: start: 20161225
  21. SAMSCA [Suspect]
     Active Substance: TOLVAPTAN
     Indication: POLYURIA
     Dosage: 15 MG, QD
     Route: 048
     Dates: start: 20170611
  22. FEBURIC [Concomitant]
     Active Substance: FEBUXOSTAT
     Dosage: 10 MG, QD
     Route: 048
     Dates: start: 20170113
  23. SLOW?K [Concomitant]
     Active Substance: POTASSIUM CHLORIDE
     Indication: MINERAL SUPPLEMENTATION
     Dosage: 600 MG, BID
     Route: 048
     Dates: start: 20160506, end: 20161218
  24. SLOW?K [Concomitant]
     Active Substance: POTASSIUM CHLORIDE
     Dosage: 1200 MG, BID
     Route: 048
     Dates: start: 20161220
  25. PICOSULFATE NA [Concomitant]
     Active Substance: SODIUM PICOSULFATE
     Indication: CONSTIPATION
     Dosage: 10 MG, AS NECESSARY
     Route: 048
     Dates: start: 20170524
  26. PENLES [Concomitant]
     Active Substance: LIDOCAINE
     Indication: PAIN
     Dosage: 36 MG, UNK
     Route: 062
     Dates: start: 20171011
  27. DARBEPOETIN ALFA [Suspect]
     Active Substance: DARBEPOETIN ALFA
     Dosage: 180 MUG, UNK
     Route: 058
     Dates: start: 20170802
  28. SAMSCA [Suspect]
     Active Substance: TOLVAPTAN
     Dosage: 15 MG, QD
     Route: 048
     Dates: start: 20170812
  29. BIOFERMIN [Concomitant]
     Active Substance: BACILLUS SUBTILIS\LACTOBACILLUS ACIDOPHILUS\STREPTOCOCCUS FAECAIS
     Dosage: 1 G, TID
     Route: 048
     Dates: start: 20170811
  30. TELEMINSOFT [Concomitant]
     Active Substance: BISACODYL
     Indication: CONSTIPATION
     Dosage: 10 MG, PRN
     Route: 054
     Dates: start: 20170807
  31. SODIUM PICOSULFATE [Suspect]
     Active Substance: SODIUM PICOSULFATE
     Dosage: 10 GTT, AS NECESSARY
     Route: 048
     Dates: start: 20170706
  32. FEBURIC [Concomitant]
     Active Substance: FEBUXOSTAT
     Indication: HYPERURICAEMIA
     Dosage: 10 MG, QD
     Route: 048
     Dates: start: 20160304, end: 20161218
  33. SODIUM FERRIC CITRATE [Concomitant]
     Active Substance: FERRIC SODIUM CITRATE
     Indication: NEPHROGENIC ANAEMIA
     Dosage: 50 MG, QD
     Route: 048
     Dates: start: 20160930, end: 20161218
  34. RISUMIC [Concomitant]
     Active Substance: AMEZINIUM METILSULFATE
     Indication: HYPOTENSION
     Dosage: 10 MG, BEFORE HEMODIALYSIS
     Route: 048
     Dates: start: 20171013
  35. DARBEPOETIN ALFA [Suspect]
     Active Substance: DARBEPOETIN ALFA
     Dosage: 120 MUG, UNK
     Route: 058
     Dates: start: 20170629
  36. DARBEPOETIN ALFA [Suspect]
     Active Substance: DARBEPOETIN ALFA
     Dosage: 120 MUG, UNK
     Route: 058
     Dates: start: 20171006
  37. DARBEPOETIN ALFA [Suspect]
     Active Substance: DARBEPOETIN ALFA
     Dosage: 30 MUG, UNK
     Route: 058
     Dates: start: 201711, end: 201711
  38. DARBEPOETIN ALFA [Suspect]
     Active Substance: DARBEPOETIN ALFA
     Dosage: 30 MUG, UNK
     Route: 065
     Dates: start: 20180205
  39. DARBEPOETIN ALFA [Suspect]
     Active Substance: DARBEPOETIN ALFA
     Dosage: 30 MUG, UNK
     Route: 042
     Dates: start: 20180402
  40. SENNOSIDE [Suspect]
     Active Substance: SENNOSIDES
     Dosage: 24 MG, AS NECESSARY
     Route: 048
     Dates: start: 20170818, end: 20171027
  41. SENNOSIDE [Suspect]
     Active Substance: SENNOSIDES
     Dosage: 24 MG, QD
     Route: 048
     Dates: start: 20171110
  42. MUCOSOLVAN L [Concomitant]
     Active Substance: AMBROXOL HYDROCHLORIDE
     Indication: SPUTUM RETENTION
     Dosage: 45 MG, QD
     Route: 048
     Dates: start: 20161202, end: 20161218
  43. MEILAX [Concomitant]
     Active Substance: ETHYL LOFLAZEPATE
     Indication: ANOREXIA NERVOSA
     Dosage: 0.5 MG, QD
     Route: 048
     Dates: start: 20180511
  44. LANSOPRAZOLE. [Concomitant]
     Active Substance: LANSOPRAZOLE
     Indication: PROPHYLAXIS
     Dosage: 15 MG, QD
     Route: 048
     Dates: start: 20170722
  45. RISUMIC [Concomitant]
     Active Substance: AMEZINIUM METILSULFATE
     Dosage: 10 MG, QD
     Route: 048
     Dates: start: 20171016
  46. ENSURE [Concomitant]
     Active Substance: AMINO ACIDS\DEXTROSE\ELECTROLYTES NOS\SOYBEAN OIL\VITAMINS
     Indication: NUTRITIONAL SUPPLEMENTATION
     Dosage: 500 ML, QD
     Route: 048
     Dates: start: 20180427
  47. FESIN [Concomitant]
     Active Substance: IRON SUCROSE
     Indication: NEPHROGENIC ANAEMIA
     Dosage: 40 MG, (AT THE TIME OF HAEMODIALYSIS)
     Route: 042
     Dates: start: 20171211
  48. GLUCOSE [Concomitant]
     Active Substance: DEXTROSE
     Indication: NEPHROGENIC ANAEMIA
     Dosage: 20 ML, (AT THE TIME OF HAEMODIALYSIS)
     Route: 042
     Dates: start: 20171211
  49. SENNOSIDE [Suspect]
     Active Substance: SENNOSIDES
     Indication: CONSTIPATION
     Dosage: 24 MG, QD
     Route: 048
     Dates: start: 20160415, end: 20161218
  50. SENNOSIDE [Suspect]
     Active Substance: SENNOSIDES
     Dosage: 24 MG, AS NECESSARY
     Route: 048
     Dates: start: 20171110
  51. BIOFERMIN [Concomitant]
     Active Substance: BACILLUS SUBTILIS\LACTOBACILLUS ACIDOPHILUS\STREPTOCOCCUS FAECAIS
     Indication: GASTROINTESTINAL DISORDER
     Dosage: 1 G, TID
     Route: 048
     Dates: start: 20160527, end: 20161218
  52. BIOFERMIN [Concomitant]
     Active Substance: BACILLUS SUBTILIS\LACTOBACILLUS ACIDOPHILUS\STREPTOCOCCUS FAECAIS
     Dosage: 1 G, TID
     Route: 048
     Dates: start: 20161220
  53. LINZESS [Concomitant]
     Active Substance: LINACLOTIDE
     Indication: CONSTIPATION
     Dosage: 0.5 MG, QD
     Route: 048
     Dates: start: 20170524
  54. GEBEN [Concomitant]
     Active Substance: SILVER SULFADIAZINE
     Indication: DECUBITUS ULCER
     Dosage: UNK, PRN
     Route: 061
     Dates: start: 20170808
  55. EMLA [Concomitant]
     Active Substance: LIDOCAINE\PRILOCAINE
     Indication: PAIN
     Dosage: UNK, PRN
     Route: 062
     Dates: start: 20180326
  56. RISUMIC [Concomitant]
     Active Substance: AMEZINIUM METILSULFATE
     Dosage: 10 MG, BID
     Route: 048
     Dates: start: 20171112
  57. RISUMIC [Concomitant]
     Active Substance: AMEZINIUM METILSULFATE
     Dosage: 10 MG, BID
     Route: 048
     Dates: start: 20171115
  58. DARBEPOETIN ALFA [Suspect]
     Active Substance: DARBEPOETIN ALFA
     Dosage: 90 MUG, UNK
     Route: 058
     Dates: start: 20170602
  59. DARBEPOETIN ALFA [Suspect]
     Active Substance: DARBEPOETIN ALFA
     Dosage: 60 MUG, UNK
     Route: 065
     Dates: start: 20180309
  60. AMITIZA [Suspect]
     Active Substance: LUBIPROSTONE
     Dosage: 24 MUG, QD
     Route: 048
     Dates: start: 20171106
  61. FUROSEMIDE. [Suspect]
     Active Substance: FUROSEMIDE
     Dosage: 20 MG, BID
     Route: 048
     Dates: start: 20170804
  62. SODIUM BICARBONATE. [Concomitant]
     Active Substance: SODIUM BICARBONATE
     Dosage: 1 G, BID
     Route: 048
     Dates: start: 20170113
  63. BIOFERMIN [Concomitant]
     Active Substance: BACILLUS SUBTILIS\LACTOBACILLUS ACIDOPHILUS\STREPTOCOCCUS FAECAIS
     Indication: CONSTIPATION
     Dosage: 1 G, TID
     Route: 048
     Dates: start: 20161220
  64. BIOFERMIN [Concomitant]
     Active Substance: BACILLUS SUBTILIS\LACTOBACILLUS ACIDOPHILUS\STREPTOCOCCUS FAECAIS
     Dosage: 1 G, TID
     Route: 048
     Dates: start: 20170113
  65. SODIUM FERRIC CITRATE [Concomitant]
     Active Substance: FERRIC SODIUM CITRATE
     Dosage: 50 MG, QD
     Route: 048
     Dates: start: 20170113
  66. SODIUM FERRIC CITRATE [Concomitant]
     Active Substance: FERRIC SODIUM CITRATE
     Dosage: 50 MG, QD
     Route: 048
     Dates: start: 20170809

REACTIONS (15)
  - Shunt occlusion [Recovered/Resolved]
  - Dehydration [Recovered/Resolved]
  - Renal impairment [Recovering/Resolving]
  - Dehydration [Recovered/Resolved]
  - Anogenital warts [Recovered/Resolved]
  - Eating disorder [Recovering/Resolving]
  - Shunt infection [Recovered/Resolved]
  - Blood pressure decreased [Recovered/Resolved]
  - Renal impairment [Recovering/Resolving]
  - Shunt occlusion [Recovered/Resolved]
  - Hyponatraemia [Recovered/Resolved]
  - Renal impairment [Recovering/Resolving]
  - Shunt stenosis [Recovered/Resolved]
  - Shunt stenosis [Recovered/Resolved]
  - Seizure [Recovered/Resolved]

NARRATIVE: CASE EVENT DATE: 20161028
